FAERS Safety Report 24357941 (Version 3)
Quarter: 2024Q4

REPORT INFORMATION
  Report Type: Spontaneous
  Country: US (occurrence: US)
  Receive Date: 20240924
  Receipt Date: 20241024
  Transmission Date: 20250115
  Serious: No
  Sender: BRISTOL-MYERS SQUIBB COMPANY
  Company Number: US-BRISTOL-MYERS SQUIBB COMPANY-2024-147806

PATIENT
  Age: 74 Year
  Sex: Female

DRUGS (1)
  1. LENALIDOMIDE [Suspect]
     Active Substance: LENALIDOMIDE
     Indication: Plasma cell myeloma
     Route: 048
     Dates: start: 20240918

REACTIONS (6)
  - Fatigue [Unknown]
  - Oedema peripheral [Not Recovered/Not Resolved]
  - Nausea [Unknown]
  - Hunger [Unknown]
  - Constipation [Unknown]
  - Haemoglobin decreased [Unknown]
